FAERS Safety Report 9490851 (Version 1)
Quarter: 2013Q3

REPORT INFORMATION
  Report Type: Spontaneous
  Country: FR (occurrence: FR)
  Receive Date: 20130830
  Receipt Date: 20130830
  Transmission Date: 20140515
  Serious: Yes (Other)
  Sender: FDA-Public Use
  Company Number: FR-AMGEN-FRASP2013060877

PATIENT
  Age: 61 Year
  Sex: Female

DRUGS (1)
  1. ENBREL [Suspect]
     Indication: RHEUMATOID ARTHRITIS
     Dosage: 50 MG, WEEKLY
     Route: 058
     Dates: start: 200909, end: 20121203

REACTIONS (4)
  - Myositis [Recovered/Resolved]
  - Rheumatoid arthritis [Unknown]
  - IVth nerve paralysis [Unknown]
  - Diplopia [Recovered/Resolved]
